FAERS Safety Report 8037982-5 (Version None)
Quarter: 2012Q1

REPORT INFORMATION
  Report Type: 
  Country: None (occurrence: None)
  Receive Date: 20120111
  Receipt Date: 20120106
  Transmission Date: 20120608
  Serious: Yes (Other)
  Sender: FDA-Public Use
  Company Number: US-PFIZER INC-2012004936

PATIENT
  Sex: Female

DRUGS (4)
  1. DILANTIN [Suspect]
     Indication: CONVULSION
     Dosage: 50 MG, DAILY
     Route: 048
     Dates: start: 19970101
  2. DILANTIN [Suspect]
     Dosage: 50 MG, DAILY
     Route: 048
  3. DILANTIN [Suspect]
     Dosage: 200 MG, UNK
     Route: 048
  4. PLAVIX [Concomitant]
     Indication: ANTICOAGULANT THERAPY
     Dosage: UNK
     Route: 048
     Dates: start: 19970101

REACTIONS (4)
  - ABASIA [None]
  - DYSSTASIA [None]
  - BALANCE DISORDER [None]
  - WEIGHT INCREASED [None]
